FAERS Safety Report 8432276-8 (Version None)
Quarter: 2012Q2

REPORT INFORMATION
  Report Type: 
  Country: None (occurrence: None)
  Receive Date: 20120613
  Receipt Date: 20120607
  Transmission Date: 20120825
  Serious: No
  Sender: FDA-Public Use
  Company Number: PHEH2012US011727

PATIENT
  Sex: Male
  Weight: 88.435 kg

DRUGS (4)
  1. OMEPRAZOLE [Concomitant]
  2. ASPIRIN [Concomitant]
  3. METOPROLOL TARTRATE [Concomitant]
  4. TASIGNA [Suspect]
     Dosage: 400 MG, BID
     Route: 048

REACTIONS (1)
  - ABDOMINAL PAIN UPPER [None]
